FAERS Safety Report 7028238-8 (Version None)
Quarter: 2010Q4

REPORT INFORMATION
  Report Type: 
  Country: None (occurrence: None)
  Receive Date: 20101005
  Receipt Date: 20100924
  Transmission Date: 20110411
  Serious: Yes (Hospitalization)
  Sender: FDA-Public Use
  Company Number: CA-JNJFOC-20100808096

PATIENT
  Sex: Female
  Weight: 50 kg

DRUGS (4)
  1. REMICADE [Suspect]
     Indication: CROHN'S DISEASE
     Dosage: 9-6 WEEKS
     Route: 042
  2. METHOTREXATE [Suspect]
     Indication: PRODUCT USED FOR UNKNOWN INDICATION
  3. ENTOCORT EC [Concomitant]
     Route: 048
  4. METRONIDAZOLE [Concomitant]
     Route: 048

REACTIONS (4)
  - CANDIDIASIS [None]
  - MOUTH HAEMORRHAGE [None]
  - NEPHROLITHIASIS [None]
  - SWELLING FACE [None]
